FAERS Safety Report 14661278 (Version 2)
Quarter: 2018Q2

REPORT INFORMATION
  Report Type: Spontaneous
  Country: GB (occurrence: GB)
  Receive Date: 20180320
  Receipt Date: 20180626
  Transmission Date: 20180711
  Serious: Yes (Other)
  Sender: FDA-Public Use
  Company Number: GB-ELI_LILLY_AND_COMPANY-GB201803004615

PATIENT
  Age: 48 Year
  Sex: Female
  Weight: 75.29 kg

DRUGS (4)
  1. FLUPENTIXOL [Concomitant]
     Active Substance: FLUPENTIXOL
     Indication: MANIA
     Dosage: 80 MG, MONTHLY (1/M)
     Dates: start: 2006
  2. FLUOXETINE [Suspect]
     Active Substance: FLUOXETINE HYDROCHLORIDE
     Indication: BIPOLAR DISORDER
     Dosage: 40 MG, DAILY
     Route: 048
  3. FLUOXETINE [Suspect]
     Active Substance: FLUOXETINE HYDROCHLORIDE
     Dosage: 60 MG, DAILY
     Route: 048
     Dates: start: 1995
  4. PROCYCLIDINE [Concomitant]
     Active Substance: PROCYCLIDINE
     Indication: TREMOR
     Dosage: 5 MG, DAILY
     Route: 065

REACTIONS (6)
  - Rectal abscess [Not Recovered/Not Resolved]
  - Hyponatraemia [Unknown]
  - Memory impairment [Not Recovered/Not Resolved]
  - Anorgasmia [Not Recovered/Not Resolved]
  - Trichorrhexis [Unknown]
  - Fluid overload [Unknown]

NARRATIVE: CASE EVENT DATE: 19990101
